FAERS Safety Report 14301383 (Version 1)
Quarter: 2017Q4

REPORT INFORMATION
  Report Type: Spontaneous
  Country: US (occurrence: US)
  Receive Date: 20171218
  Receipt Date: 20171218
  Transmission Date: 20180321
  Serious: Yes (Hospitalization)
  Sender: FDA-Public Use
  Company Number: None

PATIENT
  Age: 68 Year
  Sex: Female

DRUGS (6)
  1. VITAMIN D [Suspect]
     Active Substance: CHOLECALCIFEROL
  2. LETROZOLE. [Suspect]
     Active Substance: LETROZOLE
  3. CALCIUM CARB [Suspect]
     Active Substance: CALCIUM CARBONATE
  4. OXYCODONE [Suspect]
     Active Substance: OXYCODONE
  5. VITAMIN D3 [Suspect]
     Active Substance: CHOLECALCIFEROL
  6. IBRANCE [Suspect]
     Active Substance: PALBOCICLIB
     Indication: BREAST CANCER FEMALE
     Route: 048
     Dates: start: 20161117

REACTIONS (4)
  - Dehydration [None]
  - Feeding disorder [None]
  - Drug dose omission [None]
  - Insomnia [None]

NARRATIVE: CASE EVENT DATE: 20171209
